FAERS Safety Report 4412125-5 (Version None)
Quarter: 2004Q3

REPORT INFORMATION
  Report Type: 
  Country: None (occurrence: None)
  Receive Date: 20040730
  Receipt Date: 20040726
  Transmission Date: 20050211
  Serious: Yes (Other)
  Sender: FDA-Public Use
  Company Number: ES-GLAXOSMITHKLINE-B0340687A

PATIENT
  Sex: Male

DRUGS (1)
  1. SERETIDE [Suspect]

REACTIONS (4)
  - ANAEMIA [None]
  - ARRHYTHMIA [None]
  - OVERDOSE [None]
  - TACHYCARDIA [None]
